FAERS Safety Report 4521192-X (Version None)
Quarter: 2004Q4

REPORT INFORMATION
  Report Type: 
  Country: None (occurrence: None)
  Receive Date: 20041208
  Receipt Date: 20031121
  Transmission Date: 20050328
  Serious: Yes (Hospitalization)
  Sender: FDA-Public Use
  Company Number: US-MERCK-0311USA02552

PATIENT
  Age: 46 Year
  Sex: Female
  Weight: 68 kg

DRUGS (19)
  1. LANOXIN [Concomitant]
     Route: 048
     Dates: start: 20010401
  2. PLAVIX [Concomitant]
     Route: 048
     Dates: start: 20010401
  3. ASPIRIN [Concomitant]
     Route: 048
     Dates: start: 20010401
  4. VISTARIL [Concomitant]
     Route: 065
     Dates: end: 20010710
  5. VIOXX [Suspect]
     Indication: PAIN MANAGEMENT
     Route: 048
     Dates: start: 20000510, end: 20030314
  6. PREMARIN [Concomitant]
     Indication: HORMONE REPLACEMENT THERAPY
     Route: 065
  7. EFFEXOR XR [Concomitant]
     Indication: DEPRESSION
     Route: 065
     Dates: start: 19991101, end: 20010524
  8. REMERON [Concomitant]
     Indication: DEPRESSION
     Route: 048
     Dates: start: 20000411, end: 20010524
  9. VICODIN [Concomitant]
     Indication: PAIN
     Route: 065
     Dates: start: 19990701
  10. SOMA [Concomitant]
     Indication: BACK PAIN
     Route: 065
     Dates: start: 19990101
  11. SEROQUEL [Concomitant]
     Indication: ANXIETY
     Route: 048
  12. PHENERGAN [Concomitant]
     Indication: NAUSEA
     Route: 065
  13. KLONOPIN [Concomitant]
     Indication: DEPRESSION
     Route: 065
     Dates: start: 19991101, end: 20010524
  14. KLONOPIN [Concomitant]
     Indication: ANXIETY
     Route: 065
     Dates: start: 19991101, end: 20010524
  15. RISPERDAL [Concomitant]
     Indication: SLEEP DISORDER
     Route: 048
     Dates: start: 19990101, end: 20020325
  16. ZESTRIL [Concomitant]
     Indication: CARDIOMYOPATHY
     Route: 048
     Dates: start: 20010401
  17. GEODON [Concomitant]
     Route: 065
     Dates: end: 20020401
  18. ZOCOR [Concomitant]
     Indication: CEREBROVASCULAR ACCIDENT
     Route: 065
  19. CELEBREX [Concomitant]
     Route: 048
     Dates: start: 20000411, end: 20000510

REACTIONS (32)
  - AORTIC VALVE INCOMPETENCE [None]
  - BRONCHITIS [None]
  - CARDIOMYOPATHY [None]
  - CEREBRAL ARTERY STENOSIS [None]
  - CEREBROVASCULAR ACCIDENT [None]
  - CONSTIPATION [None]
  - COUGH [None]
  - CUBITAL TUNNEL SYNDROME [None]
  - DECREASED APPETITE [None]
  - DEPRESSION [None]
  - DRUG ABUSER [None]
  - DRUG INEFFECTIVE [None]
  - EJECTION FRACTION DECREASED [None]
  - EMOTIONAL DISTRESS [None]
  - FEELING HOT AND COLD [None]
  - HEADACHE [None]
  - HYPERLIPIDAEMIA [None]
  - INJURY [None]
  - INSOMNIA [None]
  - LOOSE STOOLS [None]
  - LOWER RESPIRATORY TRACT INFECTION [None]
  - NASOPHARYNGITIS [None]
  - NERVOUS SYSTEM DISORDER [None]
  - NEUROPATHY [None]
  - NOCTURIA [None]
  - ROAD TRAFFIC ACCIDENT [None]
  - SEXUAL DYSFUNCTION [None]
  - SINUSITIS [None]
  - TENSION [None]
  - TRANSIENT ISCHAEMIC ATTACK [None]
  - URINARY INCONTINENCE [None]
  - VISUAL DISTURBANCE [None]
